FAERS Safety Report 5319200-1 (Version None)
Quarter: 2007Q2

REPORT INFORMATION
  Report Type: 
  Country: None (occurrence: None)
  Receive Date: 20070508
  Receipt Date: 20070426
  Transmission Date: 20071010
  Serious: Yes (Hospitalization)
  Sender: FDA-Public Use
  Company Number: DE-ASTRAZENECA-2007PK00946

PATIENT
  Age: 61 Year
  Sex: Male
  Weight: 77 kg

DRUGS (1)
  1. BUPIVACAINE HCL [Suspect]
     Route: 037

REACTIONS (3)
  - EXTRADURAL HAEMATOMA [None]
  - PARAPLEGIA [None]
  - PLASMACYTOMA [None]
